FAERS Safety Report 17198542 (Version 1)
Quarter: 2019Q4

REPORT INFORMATION
  Report Type: Spontaneous
  Country: FR (occurrence: FR)
  Receive Date: 20191225
  Receipt Date: 20191225
  Transmission Date: 20200122
  Serious: Yes (Other)
  Sender: FDA-Public Use
  Company Number: FR-TEVA-2019-FR-1120850

PATIENT
  Age: 70 Year
  Sex: Male
  Weight: 76 kg

DRUGS (5)
  1. LYRICA [Suspect]
     Active Substance: PREGABALIN
     Indication: PRODUCT USED FOR UNKNOWN INDICATION
     Dosage: 100MG/ DAY
     Route: 048
  2. ILOMEDINE [Suspect]
     Active Substance: ILOPROST TROMETHAMINE
     Indication: ISCHAEMIA
     Dosage: 1.2MG / DAY/ 18 DAYS
     Route: 042
     Dates: start: 20190809, end: 20190827
  3. RIFADINE [Suspect]
     Active Substance: RIFAMPIN
     Indication: OSTEITIS
     Dosage: 600MG/ DAY
     Route: 048
     Dates: start: 20190801
  4. DOXYCYCLINE. [Suspect]
     Active Substance: DOXYCYCLINE
     Indication: OSTEITIS
     Dosage: 200MG/ DAY
     Route: 048
     Dates: start: 20190801
  5. APOKINON [Suspect]
     Active Substance: APOMORPHINE
     Indication: PARKINSON^S DISEASE
     Dosage: 4 MG / H PER DAY
     Route: 058
     Dates: start: 20190801

REACTIONS (1)
  - Hallucination, visual [Not Recovered/Not Resolved]

NARRATIVE: CASE EVENT DATE: 20190817
